FAERS Safety Report 23254370 (Version 1)
Quarter: 2023Q4

REPORT INFORMATION
  Report Type: Spontaneous
  Country: US (occurrence: US)
  Receive Date: 20231202
  Receipt Date: 20231202
  Transmission Date: 20240110
  Serious: Yes (Other)
  Sender: FDA-Public Use
  Company Number: US-IBSA PHARMA INC.-2023IBS000663

PATIENT

DRUGS (1)
  1. TIROSINT [Suspect]
     Active Substance: LEVOTHYROXINE SODIUM
     Indication: Hypothyroidism
     Dosage: 88 MICROGRAM, A DOUBLE DOSE ON THE WEEKEND
     Route: 048

REACTIONS (8)
  - Hypothyroidism [Unknown]
  - Anaemia [Unknown]
  - Asthenia [Unknown]
  - Hypoglycaemia [Unknown]
  - Cortisol abnormal [Unknown]
  - Decreased appetite [Unknown]
  - Temperature intolerance [Unknown]
  - Alopecia [Unknown]
